FAERS Safety Report 5578059-8 (Version None)
Quarter: 2007Q4

REPORT INFORMATION
  Report Type: 
  Country: None (occurrence: None)
  Receive Date: 20071231
  Receipt Date: 20071220
  Transmission Date: 20080405
  Serious: Yes (Hospitalization)
  Sender: FDA-Public Use
  Company Number: US-ROCHE-534553

PATIENT
  Age: 57 Year
  Sex: Male
  Weight: 93.9 kg

DRUGS (15)
  1. METHOXY POLYETHYLENE GLYCOL-EPOETIN BETA [Suspect]
     Route: 058
     Dates: start: 20070626
  2. HECTOROL [Concomitant]
     Dates: start: 20071015
  3. HECTOROL [Concomitant]
     Dates: start: 20071130
  4. AMBIEN [Concomitant]
     Dosage: REPORTED AS: AMBIEN CR.
     Dates: start: 20070911
  5. GABAPENTIN [Concomitant]
     Dates: start: 20070208
  6. VICODIN [Concomitant]
     Dates: start: 20070208
  7. RENAGEL [Concomitant]
     Dosage: TDD ALSO REPORTED AS 800 MG.
     Dates: start: 20070207
  8. LIPITOR [Concomitant]
     Dates: start: 20070926
  9. PREVACID [Concomitant]
     Dates: start: 20070516
  10. POTASSIUM CHLORIDE [Concomitant]
     Dates: start: 20051005
  11. POTASSIUM CHLORIDE [Concomitant]
     Dates: start: 20071130
  12. RENAPLEX [Concomitant]
     Dates: start: 20050906
  13. ISOSORBIDE DINITRATE [Concomitant]
     Dates: start: 20050818
  14. REGLAN [Concomitant]
     Dates: start: 20050717
  15. GENTAMICIN [Concomitant]
     Route: 061
     Dates: start: 20070620

REACTIONS (1)
  - ANGINA UNSTABLE [None]
